FAERS Safety Report 10337915 (Version 1)
Quarter: 2014Q3

REPORT INFORMATION
  Report Type: Spontaneous
  Country: US (occurrence: US)
  Receive Date: 20140724
  Receipt Date: 20140724
  Transmission Date: 20150326
  Serious: No
  Sender: FDA-Public Use
  Company Number: US-UNITED THERAPEUTICS-UTC-047274

PATIENT
  Age: 55 Year
  Sex: Female
  Weight: 92.98 kg

DRUGS (2)
  1. REMODULIN [Suspect]
     Active Substance: TREPROSTINIL
     Dosage: .002 UG/KG/MIN
     Route: 058
     Dates: start: 20140407
  2. REVATIO [Concomitant]
     Active Substance: SILDENAFIL CITRATE

REACTIONS (2)
  - Heart rate increased [Unknown]
  - Chest pain [Unknown]

NARRATIVE: CASE EVENT DATE: 20140407
